FAERS Safety Report 5927060-0 (Version None)
Quarter: 2008Q4

REPORT INFORMATION
  Report Type: 
  Country: None (occurrence: None)
  Receive Date: 20081022
  Receipt Date: 20081015
  Transmission Date: 20090506
  Serious: Yes (Hospitalization, Disabling)
  Sender: FDA-Public Use
  Company Number: PHHY2008CA25082

PATIENT
  Sex: Female

DRUGS (2)
  1. ACLASTA [Suspect]
     Indication: OSTEOPOROSIS
     Dosage: UNK
     Dates: start: 20080924
  2. NARCOTICS [Concomitant]

REACTIONS (4)
  - BONE PAIN [None]
  - DYSSTASIA [None]
  - HYPOAESTHESIA [None]
  - WALKING DISABILITY [None]
